FAERS Safety Report 7169179-5 (Version None)
Quarter: 2010Q4

REPORT INFORMATION
  Report Type: 
  Country: None (occurrence: None)
  Receive Date: 20101216
  Receipt Date: 20100119
  Transmission Date: 20110411
  Serious: No
  Sender: FDA-Public Use
  Company Number: US-AMGEN-KDL386701

PATIENT

DRUGS (16)
  1. ENBREL [Suspect]
     Indication: PRODUCT USED FOR UNKNOWN INDICATION
     Dosage: 50 MG, QWK
     Route: 058
  2. PANTOPRAZOLE [Concomitant]
     Dosage: 20 MG, UNK
  3. SERTRALINE [Concomitant]
     Dosage: 25 MG, UNK
  4. FOLINIC ACID [Concomitant]
     Dosage: 5 MG, UNK
  5. METHOTREXATE [Concomitant]
     Dosage: 2.5 MG, UNK
  6. LEVOTHYROXINE SODIUM [Concomitant]
     Dosage: 25 A?G, UNK
  7. METHYLPHENIDATE HCL [Concomitant]
     Dosage: 5 MG, UNK
  8. TRAMADOL HCL [Concomitant]
     Dosage: 50 MG, UNK
  9. NAPROXEN [Concomitant]
     Dosage: 250 MG, UNK
  10. PRAVASTATIN [Concomitant]
     Dosage: 10 MG, UNK
  11. METFORMIN [Concomitant]
     Dosage: 500 MG, UNK
  12. FOLIC ACID [Concomitant]
     Dosage: 1 MG, UNK
  13. ISONIAZID [Concomitant]
     Dosage: 100 MG, UNK
  14. INDAPAMIDE [Concomitant]
     Dosage: 1.25 MG, UNK
  15. RANITIDINE HYDROCHLORIDE [Concomitant]
     Dosage: 75 MG, UNK
  16. TOPIRAMATE [Concomitant]
     Dosage: 15 MG, UNK

REACTIONS (1)
  - BRONCHITIS [None]
